FAERS Safety Report 24319311 (Version 1)
Quarter: 2024Q3

REPORT INFORMATION
  Report Type: Spontaneous
  Country: IN (occurrence: IN)
  Receive Date: 20240914
  Receipt Date: 20240914
  Transmission Date: 20241017
  Serious: Yes (Other)
  Sender: ROCHE
  Company Number: IN-ROCHE-10000028080

PATIENT
  Age: 45 Year
  Sex: Male

DRUGS (1)
  1. TECENTRIQ [Suspect]
     Active Substance: ATEZOLIZUMAB
     Indication: Malignant fibrous histiocytoma
     Dosage: 10TH AND 11TH CYCLE OF TECENTRIQ WAS SCHEDULED BY THE PHYSICIAN ON THE 28TH AND 30TH INSTEAD OF THE
     Route: 042
     Dates: start: 20231213

REACTIONS (6)
  - Disease progression [Unknown]
  - Off label use [Unknown]
  - Positron emission tomogram abnormal [Unknown]
  - Pleural effusion [Unknown]
  - Metastatic lymphoma [Unknown]
  - Off label use [Unknown]

NARRATIVE: CASE EVENT DATE: 20231213
